FAERS Safety Report 6126914-2 (Version None)
Quarter: 2009Q1

REPORT INFORMATION
  Report Type: 
  Country: None (occurrence: None)
  Receive Date: 20090320
  Receipt Date: 20090106
  Transmission Date: 20090719
  Serious: No
  Sender: FDA-Public Use
  Company Number: US-ABBOTT-09P-163-0496051-00

PATIENT
  Sex: Female

DRUGS (1)
  1. ERYTHROMYCIN BASE FILMTAB 250MG [Suspect]
     Indication: BRONCHITIS
     Route: 048
     Dates: start: 20081227, end: 20081228

REACTIONS (2)
  - DIZZINESS [None]
  - RASH GENERALISED [None]
